FAERS Safety Report 6087979-X (Version None)
Quarter: 2009Q1

REPORT INFORMATION
  Report Type: 
  Country: None (occurrence: None)
  Receive Date: 20090219
  Receipt Date: 20090206
  Transmission Date: 20090719
  Serious: Yes (Other)
  Sender: FDA-Public Use
  Company Number: CHPA2009US02153

PATIENT
  Age: 68 Year
  Sex: Male
  Weight: 97.5 kg

DRUGS (5)
  1. VOLTAREN [Suspect]
     Indication: PAIN
     Dosage: 2 G, QID, TOPICAL
     Route: 061
     Dates: start: 20081201, end: 20090104
  2. VOLTAREN [Suspect]
     Dosage: ORAL
     Route: 048
     Dates: start: 20081001, end: 20081201
  3. LISINOPRIL [Concomitant]
  4. LIPITOR /NET/(ATORVASTATIN CALCIUM) [Concomitant]
  5. . [Concomitant]

REACTIONS (2)
  - ABDOMINAL PAIN UPPER [None]
  - MELAENA [None]
